FAERS Safety Report 9415527 (Version 4)
Quarter: 2013Q3

REPORT INFORMATION
  Report Type: Spontaneous
  Country: FR (occurrence: FR)
  Receive Date: 20130723
  Receipt Date: 20130911
  Transmission Date: 20140515
  Serious: Yes (Hospitalization, Other)
  Sender: FDA-Public Use
  Company Number: FR-PFIZER INC-2013212525

PATIENT
  Age: 31 Year
  Sex: Female

DRUGS (4)
  1. EFFEXOR LP [Suspect]
     Indication: DEPRESSION
     Dosage: 75 MG, 1X/DAY, AT BEDTIME
     Route: 048
  2. ATARAX [Suspect]
     Indication: DEPRESSION
     Dosage: 100 MG, 4X/DAY
     Route: 048
  3. HAVLANE [Suspect]
     Indication: DEPRESSION
     Dosage: 10 MG, 1X/DAY, AT BEDTIME
     Route: 048
     Dates: end: 201304
  4. TERCIAN [Suspect]
     Indication: DEPRESSION
     Dosage: 12.5 MG, 4X/DAY
     Route: 048

REACTIONS (7)
  - Prescribed overdose [Unknown]
  - Drug withdrawal convulsions [Recovered/Resolved]
  - Convulsion [Recovered/Resolved]
  - Somatoform disorder neurologic [Recovered/Resolved]
  - Malaise [Recovered/Resolved]
  - Post lumbar puncture syndrome [Recovered/Resolved]
  - Off label use [Unknown]
